FAERS Safety Report 8518766-8 (Version None)
Quarter: 2012Q3

REPORT INFORMATION
  Report Type: 
  Country: None (occurrence: None)
  Receive Date: 20120718
  Receipt Date: 20120713
  Transmission Date: 20120928
  Serious: Yes (Other)
  Sender: FDA-Public Use
  Company Number: PHHY2010US79511

PATIENT
  Sex: Female

DRUGS (2)
  1. CHEMOTHERAPEUTICS NOS [Concomitant]
  2. FEMARA [Suspect]
     Indication: BREAST CANCER FEMALE
     Dosage: 2.5 MG, QD
     Route: 048

REACTIONS (4)
  - NEOPLASM MALIGNANT [None]
  - NEOPLASM PROGRESSION [None]
  - DRUG INEFFECTIVE [None]
  - TUMOUR MARKER INCREASED [None]
